FAERS Safety Report 25237651 (Version 1)
Quarter: 2025Q2

REPORT INFORMATION
  Report Type: Spontaneous
  Country: US (occurrence: US)
  Receive Date: 20250425
  Receipt Date: 20250425
  Transmission Date: 20250716
  Serious: No
  Sender: UROGEN PHARMA
  Company Number: US-UROGEN PHARMA LTD.-2025-UGN-000061

PATIENT

DRUGS (2)
  1. JELMYTO [Suspect]
     Active Substance: MITOMYCIN
     Indication: Transitional cell cancer of the renal pelvis and ureter
     Dosage: 10 MILLILITER (INSTILLATION), ONCE A WEEK
     Dates: start: 20250327, end: 20250327
  2. JELMYTO [Suspect]
     Active Substance: MITOMYCIN
     Dosage: 10 MILLILITER (INSTILLATION), ONCE A WEEK
     Dates: start: 20250403, end: 20250403

REACTIONS (3)
  - Disorientation [Unknown]
  - Pyrexia [Unknown]
  - Abdominal pain [Unknown]

NARRATIVE: CASE EVENT DATE: 20250403
